FAERS Safety Report 20207140 (Version 2)
Quarter: 2021Q4

REPORT INFORMATION
  Report Type: Report from Study
  Country: US (occurrence: US)
  Receive Date: 20211220
  Receipt Date: 20211227
  Transmission Date: 20220303
  Serious: Yes (Other)
  Sender: FDA-Public Use
  Company Number: US-ASTELLAS-2021US048901

PATIENT
  Age: 58 Year
  Sex: Male

DRUGS (14)
  1. ENZALUTAMIDE [Suspect]
     Active Substance: ENZALUTAMIDE
     Indication: Prostate cancer
     Dosage: 160 MG, ONCE DAILY (4 CAPS OF 40 MG)
     Route: 048
     Dates: start: 20200708, end: 20201223
  2. ENZALUTAMIDE [Suspect]
     Active Substance: ENZALUTAMIDE
     Indication: Adenocarcinoma metastatic
  3. LEUPROLIDE [Concomitant]
     Active Substance: LEUPROLIDE
     Indication: Prostate cancer
     Dosage: UNK UNK, UNKNOWN FREQ.
     Route: 065
  4. LEUPROLIDE [Concomitant]
     Active Substance: LEUPROLIDE
     Indication: Adenocarcinoma metastatic
  5. DOCETAXEL [Concomitant]
     Active Substance: DOCETAXEL
     Indication: Prostate cancer
     Dosage: UNK UNK, UNKNOWN FREQ.
     Route: 065
  6. DOCETAXEL [Concomitant]
     Active Substance: DOCETAXEL
     Indication: Adenocarcinoma metastatic
  7. ATORVASTATIN [Concomitant]
     Active Substance: ATORVASTATIN
     Indication: Product used for unknown indication
     Dosage: UNK UNK, UNKNOWN FREQ.
     Route: 065
  8. ASPIRIN [Concomitant]
     Active Substance: ASPIRIN
     Indication: Product used for unknown indication
     Dosage: UNK UNK, UNKNOWN FREQ.
     Route: 065
  9. HYDROCHLOROTHIAZIDE\LISINOPRIL [Concomitant]
     Active Substance: HYDROCHLOROTHIAZIDE\LISINOPRIL
     Indication: Product used for unknown indication
     Dosage: UNK UNK, UNKNOWN FREQ.
     Route: 065
  10. EMPAGLIFLOZIN\LINAGLIPTIN [Concomitant]
     Active Substance: EMPAGLIFLOZIN\LINAGLIPTIN
     Indication: Product used for unknown indication
     Dosage: UNK UNK, UNKNOWN FREQ.
     Route: 065
  11. RADIUM RA-223 DICHLORIDE [Concomitant]
     Active Substance: RADIUM RA-223 DICHLORIDE
     Indication: Prostate cancer
     Dosage: UNK UNK, UNKNOWN FREQ.
     Route: 065
  12. RADIUM RA-223 DICHLORIDE [Concomitant]
     Active Substance: RADIUM RA-223 DICHLORIDE
     Indication: Adenocarcinoma metastatic
  13. DENOSUMAB [Concomitant]
     Active Substance: DENOSUMAB
     Indication: Prostate cancer
     Dosage: UNK UNK, UNKNOWN FREQ.
     Route: 065
  14. DENOSUMAB [Concomitant]
     Active Substance: DENOSUMAB
     Indication: Adenocarcinoma metastatic

REACTIONS (2)
  - Lichenoid keratosis [Recovered/Resolved]
  - Drug eruption [Recovered/Resolved]
